FAERS Safety Report 15138004 (Version 2)
Quarter: 2018Q3

REPORT INFORMATION
  Report Type: Spontaneous
  Country: FR (occurrence: FR)
  Receive Date: 20180712
  Receipt Date: 20180726
  Transmission Date: 20181010
  Serious: Yes (Other)
  Sender: FDA-Public Use
  Company Number: FR-AUROBINDO-AUR-APL-2018-035200

PATIENT
  Age: 14 Year
  Sex: Male

DRUGS (9)
  1. METHOTREXATE. [Concomitant]
     Active Substance: METHOTREXATE
     Indication: OSTEOSARCOMA
     Dosage: 12 GRAM, ONCE A DAY
     Route: 042
  2. VITAMIN D [Concomitant]
     Active Substance: CHOLECALCIFEROL
     Indication: PRODUCT USED FOR UNKNOWN INDICATION
     Dosage: UNK
     Route: 065
  3. ONDANSETRON [Suspect]
     Active Substance: ONDANSETRON
     Indication: PROPHYLAXIS OF NAUSEA AND VOMITING
     Dosage: UNK
     Route: 065
  4. CALCIUM [Concomitant]
     Active Substance: CALCIUM
     Indication: PRODUCT USED FOR UNKNOWN INDICATION
     Dosage: UNK
     Route: 065
  5. UROMITEXAN [Concomitant]
     Active Substance: MESNA
     Indication: OSTEOSARCOMA
     Dosage: 3.6 G/M2/DAY FROM DAY 1 TO DAY 4 (WEEKS 4 AND 9) IN A 13 WEEK CHEMOTHERAPY; ADMINISTERED ON DAY +...
     Route: 065
  6. ETOPOSIDE. [Concomitant]
     Active Substance: ETOPOSIDE
     Indication: OSTEOSARCOMA
     Dosage: 75 MG/M2/DAY FROM DAY 1 TO DAY 4 (WEEKS 4 AND 9) IN A 13?WEEK CHEMOTHERAPY; ADMINISTERED ON DAY +...
     Route: 065
  7. TRAMADOL. [Suspect]
     Active Substance: TRAMADOL
     Indication: PRODUCT USED FOR UNKNOWN INDICATION
     Dosage: UNK
     Route: 065
  8. IFOSFAMIDE. [Suspect]
     Active Substance: IFOSFAMIDE
     Indication: OSTEOSARCOMA
     Dosage: 3 HOURS INFUSION 3G/M? DAILY
     Route: 042
  9. ACETAMINOPHEN. [Concomitant]
     Active Substance: ACETAMINOPHEN
     Indication: PRODUCT USED FOR UNKNOWN INDICATION
     Dosage: UNK
     Route: 065

REACTIONS (5)
  - Hallucination [Unknown]
  - Drug interaction [Recovered/Resolved]
  - Electroencephalogram abnormal [Unknown]
  - Confusional state [Unknown]
  - Encephalopathy [Recovered/Resolved]
